FAERS Safety Report 10083469 (Version 1)
Quarter: 2014Q2

REPORT INFORMATION
  Report Type: Spontaneous
  Country: US (occurrence: US)
  Receive Date: 20140417
  Receipt Date: 20140417
  Transmission Date: 20141212
  Serious: Yes (Other)
  Sender: FDA-Public Use
  Company Number: US-ASTRAZENECA-2014SE25632

PATIENT
  Sex: Female

DRUGS (4)
  1. NEXIUM [Suspect]
     Indication: GASTROOESOPHAGEAL REFLUX DISEASE
     Route: 048
  2. NEXIUM [Suspect]
     Indication: DYSPEPSIA
     Route: 048
  3. PRILOSEC [Suspect]
     Indication: GASTRIC DISORDER
     Route: 048
  4. OVER THE COUNTER MEDICATIONS [Concomitant]

REACTIONS (4)
  - Pelvic fracture [Unknown]
  - Abdominal discomfort [Unknown]
  - Vomiting [Unknown]
  - Drug ineffective [Unknown]
